FAERS Safety Report 4284180-7 (Version None)
Quarter: 2004Q1

REPORT INFORMATION
  Report Type: 
  Country: None (occurrence: None)
  Receive Date: 20040130
  Receipt Date: 20040112
  Transmission Date: 20041129
  Serious: Yes (Hospitalization)
  Sender: FDA-Public Use
  Company Number: US_040199879

PATIENT
  Age: 79 Year
  Sex: Female
  Weight: 109 kg

DRUGS (1)
  1. HUMALOG MIX 75/25 [Suspect]
     Dosage: 72 U/DAY
     Dates: start: 20030601

REACTIONS (4)
  - CARDIOVASCULAR DISORDER [None]
  - GANGRENE [None]
  - LEG AMPUTATION [None]
  - VISUAL ACUITY REDUCED [None]
